FAERS Safety Report 22068505 (Version 1)
Quarter: 2023Q1

REPORT INFORMATION
  Report Type: Spontaneous
  Country: US (occurrence: US)
  Receive Date: 20230307
  Receipt Date: 20230307
  Transmission Date: 20230417
  Serious: Yes (Hospitalization, Other)
  Sender: FDA-Public Use
  Company Number: US-UNITED THERAPEUTICS-UNT-2023-005497

PATIENT
  Age: 64 Year
  Sex: Female
  Weight: 53.968 kg

DRUGS (6)
  1. REMODULIN [Suspect]
     Active Substance: TREPROSTINIL
     Indication: Pulmonary arterial hypertension
     Dosage: 0.019 ?G/KG, CONTINUING (SELF-FILLED CASSETTE WITH 2.2 ML; PUMP RATE OF 24 MCL/HR)
     Route: 058
  2. REMODULIN [Suspect]
     Active Substance: TREPROSTINIL
     Dosage: UNK, CONTINUING (SELF-FILLED CASSETTE WITH 3 ML; PUMP RATE OF 61 MCL/HR)
     Route: 058
  3. REMODULIN [Suspect]
     Active Substance: TREPROSTINIL
     Dosage: UNK, CONTINUING
     Route: 058
     Dates: start: 20230127
  4. REMODULIN [Suspect]
     Active Substance: TREPROSTINIL
     Indication: Pulmonary arterial hypertension
     Dosage: 0.019 ?G/KG, CONTINUING (SELF-FILLED CASSETTE WITH 3 ML; PUMP RATE OF 45 MCL/HR)
     Route: 058
  5. REMODULIN [Suspect]
     Active Substance: TREPROSTINIL
     Dosage: UNK, CONTINUING
     Route: 058
  6. OPSUMIT [Concomitant]
     Active Substance: MACITENTAN
     Indication: Product used for unknown indication
     Dosage: UNK
     Route: 065

REACTIONS (4)
  - Device failure [Recovered/Resolved]
  - Hypoxia [Unknown]
  - Joint injury [Unknown]
  - Joint dislocation [Unknown]

NARRATIVE: CASE EVENT DATE: 20230224
